FAERS Safety Report 7339902-5 (Version None)
Quarter: 2011Q1

REPORT INFORMATION
  Report Type: 
  Country: None (occurrence: None)
  Receive Date: 20110228
  Receipt Date: 20110215
  Transmission Date: 20110831
  Serious: Yes (Other)
  Sender: FDA-Public Use
  Company Number: 834089

PATIENT
  Age: 50 Year
  Sex: Female

DRUGS (2)
  1. GEMCITABINE HYDROCHLORIDE [Suspect]
     Indication: HEPATIC NEOPLASM MALIGNANT
     Dosage: 1000 MG/M^2
  2. THERAPEUTIC RADIOPHARMACEUTICALS [Suspect]
     Indication: HEPATIC NEOPLASM MALIGNANT
     Dosage: 44.1 GY

REACTIONS (3)
  - MYOSITIS [None]
  - RADIATION SKIN INJURY [None]
  - RECALL PHENOMENON [None]
